FAERS Safety Report 20547692 (Version 1)
Quarter: 2022Q1

REPORT INFORMATION
  Report Type: Spontaneous
  Country: FR (occurrence: FR)
  Receive Date: 20220303
  Receipt Date: 20220303
  Transmission Date: 20220423
  Serious: Yes (Other)
  Sender: FDA-Public Use
  Company Number: FR-ABBVIE-22K-056-4300294-00

PATIENT
  Sex: Male
  Weight: 1.91 kg

DRUGS (2)
  1. VALPROATE SODIUM [Suspect]
     Active Substance: VALPROATE SODIUM
     Indication: Maternal exposure timing unspecified
     Route: 064
  2. CARBAMAZEPINE [Suspect]
     Active Substance: CARBAMAZEPINE
     Indication: Maternal exposure timing unspecified
     Route: 064

REACTIONS (7)
  - Placental infarction [Not Recovered/Not Resolved]
  - Cardiac murmur [Recovered/Resolved]
  - Foetal growth restriction [Recovered/Resolved]
  - Tonsillitis [Unknown]
  - Dyslexia [Unknown]
  - Hypospadias [Unknown]
  - Foetal exposure during pregnancy [Unknown]

NARRATIVE: CASE EVENT DATE: 19880101
